FAERS Safety Report 18303397 (Version 5)
Quarter: 2020Q4

REPORT INFORMATION
  Report Type: Report from Study
  Country: US (occurrence: US)
  Receive Date: 20200924
  Receipt Date: 20201128
  Transmission Date: 20210113
  Serious: Yes (Hospitalization)
  Sender: FDA-Public Use
  Company Number: NVSC2020US260094

PATIENT
  Age: 72 Year
  Sex: Male

DRUGS (1)
  1. ENTRESTO [Suspect]
     Active Substance: SACUBITRIL\VALSARTAN
     Indication: CARDIAC FAILURE
     Dosage: 50 MG (24/26MG), BID
     Route: 048
     Dates: start: 20200701

REACTIONS (8)
  - Gait disturbance [Unknown]
  - Balance disorder [Unknown]
  - Temperature intolerance [Recovered/Resolved]
  - Fatigue [Unknown]
  - Pneumothorax [Unknown]
  - Abdominal discomfort [Unknown]
  - Drug interaction [Unknown]
  - Hypotension [Unknown]

NARRATIVE: CASE EVENT DATE: 202009
